FAERS Safety Report 22177291 (Version 1)
Quarter: 2023Q2

REPORT INFORMATION
  Report Type: Spontaneous
  Country: US (occurrence: None)
  Receive Date: 20230404
  Receipt Date: 20230404
  Transmission Date: 20230722
  Serious: Yes (Death)
  Sender: FDA-Public Use
  Company Number: None

PATIENT
  Age: 61 Year
  Sex: Female

DRUGS (2)
  1. KISQALI [Suspect]
     Active Substance: RIBOCICLIB
     Indication: Breast cancer
     Dosage: FREQUENCY : DAILY;?
     Route: 048
     Dates: start: 20200203
  2. KISQALI [Suspect]
     Active Substance: RIBOCICLIB
     Dosage: OTHER QUANTITY : TK 2 TS (400 MG);?OTHER FREQUENCY : PO 31 DAY 7D OFF;?
     Route: 048

REACTIONS (1)
  - Death [None]
